FAERS Safety Report 25949790 (Version 2)
Quarter: 2025Q4

REPORT INFORMATION
  Report Type: Spontaneous
  Country: EU (occurrence: EU)
  Receive Date: 20251022
  Receipt Date: 20251031
  Transmission Date: 20260117
  Serious: Yes (Death, Life-Threatening, Hospitalization, Other)
  Sender: GILEAD
  Company Number: None

PATIENT
  Age: 66 Year
  Sex: Female
  Weight: 55 kg

DRUGS (1)
  1. TECARTUS [Suspect]
     Active Substance: BREXUCABTAGENE AUTOLEUCEL
     Indication: Acute lymphocytic leukaemia
     Dosage: 1X10^6 CART/KG
     Route: 042
     Dates: start: 20250818, end: 20250818

REACTIONS (8)
  - Pneumonia [Fatal]
  - Central nervous system lesion [Unknown]
  - Haemophagocytic lymphohistiocytosis [Recovered/Resolved]
  - Neutropenic colitis [Unknown]
  - Bone marrow failure [Unknown]
  - Bacteraemia [Recovered/Resolved]
  - Cytokine release syndrome [Unknown]
  - Immune effector cell-associated neurotoxicity syndrome [Unknown]

NARRATIVE: CASE EVENT DATE: 20250729
